FAERS Safety Report 13450725 (Version 1)
Quarter: 2017Q2

REPORT INFORMATION
  Report Type: Spontaneous
  Country: US (occurrence: US)
  Receive Date: 20170417
  Receipt Date: 20170417
  Transmission Date: 20170830
  Serious: Yes (Hospitalization)
  Sender: FDA-Public Use
  Company Number: None

PATIENT
  Age: 51 Year
  Sex: Male
  Weight: 55.7 kg

DRUGS (17)
  1. GENVOYA [Concomitant]
     Active Substance: COBICISTAT\ELVITEGRAVIR\EMTRICITABINE\TENOFOVIR ALAFENAMIDE FUMARATE
  2. DAPSONE. [Concomitant]
     Active Substance: DAPSONE
  3. FLUCONAZOLE. [Concomitant]
     Active Substance: FLUCONAZOLE
  4. STEROIDS [Concomitant]
     Active Substance: UNSPECIFIED INGREDIENT
  5. MAALOX W/ SIMETHICONE [Concomitant]
  6. HYDRODIURIL [Concomitant]
     Active Substance: HYDROCHLOROTHIAZIDE
  7. PEPCID [Concomitant]
     Active Substance: FAMOTIDINE
  8. ALBUTEROL SULFATE. [Concomitant]
     Active Substance: ALBUTEROL SULFATE
  9. TIOTROPIUM [Concomitant]
     Active Substance: TIOTROPIUM
  10. SERTRALINE [Concomitant]
     Active Substance: SERTRALINE HYDROCHLORIDE
  11. LORATADINE. [Concomitant]
     Active Substance: LORATADINE
  12. PROTONIX [Concomitant]
     Active Substance: PANTOPRAZOLE SODIUM
  13. AZITHROMYCIN ANHYDROUS. [Concomitant]
     Active Substance: AZITHROMYCIN ANHYDROUS
  14. EPCLUSA [Suspect]
     Active Substance: SOFOSBUVIR\VELPATASVIR
     Indication: HEPATITIS C
     Dosage: 400MG/100MG QD ORAL
     Route: 048
     Dates: start: 20161019, end: 20170111
  15. ALBUTEROL. [Concomitant]
     Active Substance: ALBUTEROL
  16. NORVASC [Concomitant]
     Active Substance: AMLODIPINE BESYLATE
  17. ADVAIR DISKUS [Concomitant]
     Active Substance: FLUTICASONE PROPIONATE\SALMETEROL XINAFOATE

REACTIONS (2)
  - Condition aggravated [None]
  - Chronic obstructive pulmonary disease [None]

NARRATIVE: CASE EVENT DATE: 20161101
